FAERS Safety Report 18981071 (Version 4)
Quarter: 2021Q2

REPORT INFORMATION
  Report Type: Spontaneous
  Country: US (occurrence: US)
  Receive Date: 20210308
  Receipt Date: 20210422
  Transmission Date: 20210717
  Serious: Yes (Death, Hospitalization, Other)
  Sender: FDA-Public Use
  Company Number: US-UNITED THERAPEUTICS-UNT-2021-003937

PATIENT
  Age: 50 Year
  Sex: Female

DRUGS (5)
  1. REMODULIN [Suspect]
     Active Substance: TREPROSTINIL
     Indication: PULMONARY ARTERIAL HYPERTENSION
     Dosage: UNK, CONTINUING
     Route: 058
     Dates: start: 20191015
  2. REMODULIN [Suspect]
     Active Substance: TREPROSTINIL
     Dosage: 0.0517 ?G/KG, CONTINUING (PUMP RATE 0.044 ML/HR)
     Route: 058
     Dates: start: 20210305, end: 20210318
  3. REMODULIN [Suspect]
     Active Substance: TREPROSTINIL
     Dosage: 0.047 ?G/KG, CONTINUING (AT INFUSION RATE OF 2.6 ML)
     Route: 058
     Dates: end: 20210318
  4. OPSUMIT [Concomitant]
     Active Substance: MACITENTAN
     Indication: PULMONARY ARTERIAL HYPERTENSION
     Dosage: 10 MG, QD (1 IN 1 D)
     Route: 048
     Dates: start: 20181114
  5. REMODULIN [Suspect]
     Active Substance: TREPROSTINIL
     Dosage: 0.0497 ?G/KG, CONTINUING (PUMP RATE 0.042 ML/HOUR)
     Route: 058

REACTIONS (3)
  - Intentional medical device removal by patient [Unknown]
  - Mental status changes [Unknown]
  - Death [Fatal]

NARRATIVE: CASE EVENT DATE: 20210302
